FAERS Safety Report 7861207-4 (Version None)
Quarter: 2011Q4

REPORT INFORMATION
  Report Type: 
  Country: None (occurrence: None)
  Receive Date: 20111027
  Receipt Date: 20111019
  Transmission Date: 20120403
  Serious: Yes (Hospitalization)
  Sender: FDA-Public Use
  Company Number: US-ELI_LILLY_AND_COMPANY-US201110005744

PATIENT
  Sex: Male
  Weight: 102.4 kg

DRUGS (4)
  1. BYETTA [Suspect]
     Dosage: 10 UG, BID
     Route: 058
     Dates: start: 20050101, end: 20110904
  2. BYETTA [Suspect]
     Dosage: 10 UG, BID
     Route: 058
     Dates: start: 20110910
  3. BYETTA [Suspect]
     Indication: TYPE 2 DIABETES MELLITUS
     Dosage: 5 UG, BID
     Route: 058
     Dates: start: 20050101, end: 20050101
  4. METFORMIN HCL [Concomitant]
     Indication: TYPE 2 DIABETES MELLITUS
     Dosage: 500 MG, UNK
     Route: 048

REACTIONS (4)
  - BLOOD GLUCOSE INCREASED [None]
  - BLOOD GLUCOSE DECREASED [None]
  - DRUG INEFFECTIVE [None]
  - PROSTATOMEGALY [None]
